FAERS Safety Report 21282868 (Version 1)
Quarter: 2022Q3

REPORT INFORMATION
  Report Type: Spontaneous
  Country: US (occurrence: US)
  Receive Date: 20220901
  Receipt Date: 20220901
  Transmission Date: 20221027
  Serious: Yes (Hospitalization)
  Sender: FDA-Public Use
  Company Number: US-MYLANLABS-2022M1090034

PATIENT
  Age: 5 Decade
  Sex: Female

DRUGS (1)
  1. HEPARIN [Suspect]
     Active Substance: HEPARIN SODIUM
     Indication: Thrombosis prophylaxis
     Dosage: 5000 INTERNATIONAL UNIT, BID
     Route: 065

REACTIONS (5)
  - Anaemia [Recovering/Resolving]
  - Hepatomegaly [Unknown]
  - Subcapsular hepatic haematoma [Recovering/Resolving]
  - Haemoperitoneum [Recovering/Resolving]
  - Melaena [Unknown]
